FAERS Safety Report 14282503 (Version 1)
Quarter: 2017Q4

REPORT INFORMATION
  Report Type: Spontaneous
  Country: US (occurrence: US)
  Receive Date: 20171213
  Receipt Date: 20171213
  Transmission Date: 20180321
  Serious: No
  Sender: FDA-Public Use
  Company Number: US-MALLINCKRODT-T201701651

PATIENT
  Age: 78 Year
  Sex: Female
  Weight: 68 kg

DRUGS (6)
  1. FENTANYL TRANSDERMAL SYSTEM [Suspect]
     Active Substance: FENTANYL
     Indication: ARTHRALGIA
     Dosage: 75 MCG/HR, Q72HR
     Route: 062
  2. FENTANYL TRANSDERMAL SYSTEM [Suspect]
     Active Substance: FENTANYL
     Dosage: 50 MCG/HR, Q72H
     Route: 062
  3. FENTANYL TRANSDERMAL SYSTEM [Suspect]
     Active Substance: FENTANYL
     Dosage: 25 MCG/HR, Q72H
     Route: 062
     Dates: start: 2015
  4. OXYCODONE (NON-CAPSULES) [Concomitant]
     Dosage: 10 MG
  5. OXYCODONE [Concomitant]
     Active Substance: OXYCODONE
     Dosage: 5 MG
  6. ALTACE [Concomitant]
     Active Substance: RAMIPRIL

REACTIONS (3)
  - Wrong technique in device usage process [Not Recovered/Not Resolved]
  - Drug effect decreased [Not Recovered/Not Resolved]
  - Product packaging issue [Not Recovered/Not Resolved]

NARRATIVE: CASE EVENT DATE: 20170406
